FAERS Safety Report 8515491-4 (Version None)
Quarter: 2012Q3

REPORT INFORMATION
  Report Type: 
  Country: None (occurrence: None)
  Receive Date: 20120705
  Receipt Date: 20120625
  Transmission Date: 20120928
  Serious: Yes (Hospitalization)
  Sender: FDA-Public Use
  Company Number: 2012-2830

PATIENT
  Age: 62 Year
  Sex: Female

DRUGS (2)
  1. SOMATULINE DEPOT [Suspect]
  2. SOMATULINE DEPOT [Suspect]
     Indication: DIARRHOEA
     Dosage: 120 MG (120 MG, 1 IN 28 D) SUBCUTANEOUS
     Route: 058
     Dates: start: 20070926

REACTIONS (4)
  - OFF LABEL USE [None]
  - DIARRHOEA [None]
  - CONDITION AGGRAVATED [None]
  - DEHYDRATION [None]
